FAERS Safety Report 6699805-6 (Version None)
Quarter: 2010Q2

REPORT INFORMATION
  Report Type: 
  Country: None (occurrence: None)
  Receive Date: 20100428
  Receipt Date: 20090906
  Transmission Date: 20101027
  Serious: No
  Sender: FDA-Public Use
  Company Number: A0829409A

PATIENT
  Age: 45 Year
  Sex: Female
  Weight: 53 kg

DRUGS (1)
  1. LUXIQ [Suspect]
     Dosage: 0PCT TWICE PER DAY
     Route: 061
     Dates: start: 20090901, end: 20090906

REACTIONS (2)
  - HEADACHE [None]
  - OFF LABEL USE [None]
